FAERS Safety Report 14533489 (Version 1)
Quarter: 2018Q1

REPORT INFORMATION
  Report Type: Report from Study
  Country: US (occurrence: US)
  Receive Date: 20180215
  Receipt Date: 20180215
  Transmission Date: 20180509
  Serious: Yes (Hospitalization, Other)
  Sender: FDA-Public Use
  Company Number: US-ROCHE-2068122

PATIENT
  Sex: Female
  Weight: 86.71 kg

DRUGS (19)
  1. SERTRALINE HCL [Concomitant]
     Active Substance: SERTRALINE HYDROCHLORIDE
     Route: 048
  2. ZOLOFT [Concomitant]
     Active Substance: SERTRALINE HYDROCHLORIDE
     Route: 048
  3. PREDNISONE. [Concomitant]
     Active Substance: PREDNISONE
     Indication: DECREASED APPETITE
     Route: 048
  4. MOXIFLOXACINE [Concomitant]
     Active Substance: MOXIFLOXACIN
  5. FLUTICASONE FUROATE [Concomitant]
     Active Substance: FLUTICASONE FUROATE
     Route: 048
  6. PROMETHAZINE WITH CODEINE [Concomitant]
     Active Substance: CODEINE PHOSPHATE\PROMETHAZINE HYDROCHLORIDE
     Dosage: TAKE 5-10 ML BY MOUTH
     Route: 048
  7. DULERA [Concomitant]
     Active Substance: FORMOTEROL FUMARATE DIHYDRATE\MOMETASONE FUROATE
     Dosage: 2 PUFFS
     Route: 048
  8. ASMANEX [Concomitant]
     Active Substance: MOMETASONE FUROATE
     Dosage: INHALE 2 PUFF DAILY BY MOUTH
     Route: 065
  9. CHLORHEXIDINE SOLUTION [Concomitant]
     Dosage: RINSE WITH MOUTH FOR 30 SECOND
     Route: 065
  10. BENZONATATE. [Concomitant]
     Active Substance: BENZONATATE
     Dosage: AS NEEDED FOR COUGH
     Route: 065
  11. GILDESS [Concomitant]
     Active Substance: ETHINYL ESTRADIOL\NORETHINDRONE ACETATE
     Dosage: 15-30 MG
     Route: 048
  12. DELTASONE (PREDNISONE) [Concomitant]
     Route: 048
  13. MICROGESTIN [Concomitant]
     Active Substance: ETHINYL ESTRADIOL\NORETHINDRONE ACETATE
     Dosage: 1.5/30
     Route: 065
  14. SYMBICORT [Concomitant]
     Active Substance: BUDESONIDE\FORMOTEROL FUMARATE DIHYDRATE
     Dosage: INHALE 2 PUFF BY MOUTH
     Route: 055
  15. EPINEPHRINE. [Concomitant]
     Active Substance: EPINEPHRINE
     Dosage: 0.3 MG/0.3 ML
     Route: 065
  16. PROAIR HFA [Concomitant]
     Active Substance: ALBUTEROL SULFATE
     Dosage: INHALE 2 PUFF BY MOUTH
     Route: 048
  17. XOLAIR [Suspect]
     Active Substance: OMALIZUMAB
     Indication: ASTHMA
     Route: 058
  18. DIAZEPAM. [Suspect]
     Active Substance: DIAZEPAM
     Indication: ANXIETY
     Dosage: AS NEEDED FOR ANXIETY OR SLEEP
     Route: 048
  19. NORCO [Concomitant]
     Active Substance: ACETAMINOPHEN\HYDROCODONE BITARTRATE
     Dosage: 5-325 MG TAKE 1 TAB BY MOUTH EVERY 6 HOURS
     Route: 048

REACTIONS (11)
  - Nasal pruritus [Unknown]
  - Eye pruritus [Unknown]
  - Asthma [Unknown]
  - Anaphylactic reaction [Unknown]
  - Upper respiratory tract infection [Unknown]
  - Epistaxis [Unknown]
  - Headache [Unknown]
  - Ocular hyperaemia [Unknown]
  - Pneumonia [Unknown]
  - Seasonal allergy [Unknown]
  - Dizziness [Unknown]
